FAERS Safety Report 24179360 (Version 2)
Quarter: 2025Q3

REPORT INFORMATION
  Report Type: Spontaneous
  Country: US (occurrence: US)
  Receive Date: 20240806
  Receipt Date: 20250701
  Transmission Date: 20251020
  Serious: Yes (Hospitalization)
  Sender: PFIZER
  Company Number: US-MLMSERVICE-20240307-4871856-1

PATIENT
  Age: 86 Year
  Sex: Female

DRUGS (16)
  1. LEVETIRACETAM [Suspect]
     Active Substance: LEVETIRACETAM
     Indication: Seizure
     Dosage: FREQ:12 H;TWICE A DAY
  2. HALOPERIDOL [Suspect]
     Active Substance: HALOPERIDOL
     Indication: Agitation
  3. QUETIAPINE [Suspect]
     Active Substance: QUETIAPINE
     Indication: Agitation
  4. ALLOPURINOL [Concomitant]
     Active Substance: ALLOPURINOL
     Dosage: 300 MG, DAILY
  5. CALCITRIOL [Concomitant]
     Active Substance: CALCITRIOL
     Dosage: 0.5 UG, DAILY
  6. CARVEDILOL [Concomitant]
     Active Substance: CARVEDILOL
     Dosage: 25 MG, 2X/DAY
  7. CLONIDINE [Concomitant]
     Active Substance: CLONIDINE
     Dosage: 0.2 MG, 3X/DAY (FREQ:8 H;THREE TIMES IN A DAY)
  8. CLOPIDOGREL [Concomitant]
     Active Substance: CLOPIDOGREL BISULFATE
     Dosage: 75 MG, DAILY
  9. ESCITALOPRAM [Concomitant]
     Active Substance: ESCITALOPRAM OXALATE
     Dosage: 5 MG, DAILY
  10. FUROSEMIDE [Concomitant]
     Active Substance: FUROSEMIDE
     Dosage: 40 MG, DAILY
  11. GABAPENTIN [Concomitant]
     Active Substance: GABAPENTIN
  12. GABAPENTIN [Concomitant]
     Active Substance: GABAPENTIN
     Dosage: 300 MG, 2X/DAY (FREQ:12 H;TWICE A DAY)
  13. IRON [Concomitant]
     Active Substance: IRON
     Dosage: 325 MG, 2X/DAY
  14. LEVOTHYROXINE [Concomitant]
     Active Substance: LEVOTHYROXINE
     Dosage: 100 UG, DAILY
  15. NIFEDIPINE [Concomitant]
     Active Substance: NIFEDIPINE
     Dosage: 90 MG, DAILY
  16. PANTOPRAZOLE [Concomitant]
     Active Substance: PANTOPRAZOLE
     Dosage: 40 MG, DAILY

REACTIONS (5)
  - Aggression [Recovering/Resolving]
  - Dyskinesia [Recovered/Resolved]
  - Hallucination [Recovering/Resolving]
  - Psychomotor hyperactivity [Recovered/Resolved]
  - Delusion [Recovering/Resolving]
